FAERS Safety Report 7931682-5 (Version None)
Quarter: 2011Q4

REPORT INFORMATION
  Report Type: 
  Country: None (occurrence: None)
  Receive Date: 20111121
  Receipt Date: 20111109
  Transmission Date: 20120403
  Serious: Yes (Other)
  Sender: FDA-Public Use
  Company Number: PHHY2011JP098687

PATIENT
  Sex: Male

DRUGS (1)
  1. TASIGNA [Suspect]
     Indication: CHRONIC MYELOID LEUKAEMIA
     Dosage: 600 MG DIVED IN TO TWO DIVIDED DOSES DAILY
     Route: 048
     Dates: start: 20110819, end: 20110822

REACTIONS (7)
  - INFLAMMATION [None]
  - ACUTE ABDOMEN [None]
  - ABDOMINAL PAIN UPPER [None]
  - MUSCULOSKELETAL PAIN [None]
  - INSOMNIA [None]
  - MALAISE [None]
  - LIPASE INCREASED [None]
